FAERS Safety Report 23858928 (Version 1)
Quarter: 2024Q2

REPORT INFORMATION
  Report Type: Spontaneous
  Country: US (occurrence: US)
  Receive Date: 20240515
  Receipt Date: 20240515
  Transmission Date: 20240716
  Serious: Yes (Other)
  Sender: FDA-Public Use
  Company Number: US-LUPIN PHARMACEUTICALS INC.-2024-03933

PATIENT
  Age: 6 Decade
  Sex: Male

DRUGS (16)
  1. LEVOTHYROXINE [Suspect]
     Active Substance: LEVOTHYROXINE\LEVOTHYROXINE SODIUM
     Indication: Thyroid neoplasm
     Dosage: 200 MICROGRAM, QD
     Route: 065
  2. LEVOTHYROXINE [Suspect]
     Active Substance: LEVOTHYROXINE\LEVOTHYROXINE SODIUM
     Dosage: 175 MICROGRAM
     Route: 065
     Dates: start: 20191104
  3. LEVOTHYROXINE [Suspect]
     Active Substance: LEVOTHYROXINE\LEVOTHYROXINE SODIUM
     Dosage: 150 MICROGRAM
     Route: 065
     Dates: start: 20200127
  4. LEVOTHYROXINE [Suspect]
     Active Substance: LEVOTHYROXINE\LEVOTHYROXINE SODIUM
     Dosage: 150 MICROGRAM
     Route: 065
     Dates: start: 20200504
  5. LEVOTHYROXINE [Suspect]
     Active Substance: LEVOTHYROXINE\LEVOTHYROXINE SODIUM
     Dosage: 150 MICROGRAM
     Route: 065
     Dates: start: 20200903
  6. LEVOTHYROXINE [Suspect]
     Active Substance: LEVOTHYROXINE\LEVOTHYROXINE SODIUM
     Dosage: 150 MICROGRAM
     Route: 065
     Dates: start: 20211230
  7. LEVOTHYROXINE [Suspect]
     Active Substance: LEVOTHYROXINE\LEVOTHYROXINE SODIUM
     Dosage: 137 MICROGRAM, QD
     Route: 065
     Dates: start: 20220517
  8. LEVOTHYROXINE [Suspect]
     Active Substance: LEVOTHYROXINE\LEVOTHYROXINE SODIUM
     Dosage: 150 MICROGRAM
     Route: 065
     Dates: start: 20211230
  9. LEVOTHYROXINE [Suspect]
     Active Substance: LEVOTHYROXINE\LEVOTHYROXINE SODIUM
     Dosage: 137 MICROGRAM, QD
     Route: 065
     Dates: start: 20220714
  10. LEVOTHYROXINE [Suspect]
     Active Substance: LEVOTHYROXINE\LEVOTHYROXINE SODIUM
     Dosage: 137 MICROGRAM, QD
     Route: 065
     Dates: start: 20230424
  11. LEVOTHYROXINE [Suspect]
     Active Substance: LEVOTHYROXINE\LEVOTHYROXINE SODIUM
     Dosage: 137 MICROGRAM, QD
     Route: 065
     Dates: start: 20230622
  12. SODIUM IODIDE I-131 [Concomitant]
     Active Substance: SODIUM IODIDE I-131
     Indication: Thyroid neoplasm
     Dosage: 141 MILLICURIE
     Route: 065
  13. CABOZANTINIB [Concomitant]
     Active Substance: CABOZANTINIB
     Indication: Thyroid neoplasm
     Dosage: UNK
     Route: 065
  14. LENVATINIB [Concomitant]
     Active Substance: LENVATINIB
     Indication: Thyroid neoplasm
     Dosage: 24 MILLIGRAM, QD
     Route: 065
  15. PAZOPANIB [Concomitant]
     Active Substance: PAZOPANIB
     Indication: Thyroid neoplasm
     Dosage: 600 MILLIGRAM, QD
     Route: 065
  16. ZOLEDRONIC ACID [Concomitant]
     Active Substance: ZOLEDRONIC ACID
     Indication: Hypercalcaemia of malignancy
     Dosage: UNK
     Route: 065

REACTIONS (2)
  - Hyperthyroidism [Recovered/Resolved]
  - Off label use [Unknown]
